FAERS Safety Report 16476313 (Version 1)
Quarter: 2019Q2

REPORT INFORMATION
  Report Type: Report from Study
  Country: None (occurrence: US)
  Receive Date: 20190626
  Receipt Date: 20190626
  Transmission Date: 20190711
  Serious: Yes (Other)
  Sender: FDA-Public Use
  Company Number: US-ABBVIE-19K-163-2830850-00

PATIENT
  Sex: Male

DRUGS (1)
  1. VENCLEXTA [Suspect]
     Active Substance: VENETOCLAX
     Indication: CHRONIC LYMPHOCYTIC LEUKAEMIA
     Route: 048
     Dates: start: 20190503

REACTIONS (11)
  - White blood cell count increased [Unknown]
  - Transfusion [Unknown]
  - Weight decreased [Unknown]
  - Tumour lysis syndrome [Unknown]
  - Blood bilirubin increased [Unknown]
  - Pyrexia [Unknown]
  - Fatigue [Unknown]
  - Depression [Unknown]
  - Peripheral swelling [Unknown]
  - Waist circumference increased [Unknown]
  - Platelet count decreased [Unknown]

NARRATIVE: CASE EVENT DATE: 2019
